FAERS Safety Report 7492329-8 (Version None)
Quarter: 2011Q2

REPORT INFORMATION
  Report Type: 
  Country: None (occurrence: None)
  Receive Date: 20110519
  Receipt Date: 20110307
  Transmission Date: 20111010
  Serious: Yes (Hospitalization, Disabling, Other)
  Sender: FDA-Public Use
  Company Number: US-BAYER-201036571NA

PATIENT
  Age: 32 Year
  Sex: Female
  Weight: 73 kg

DRUGS (3)
  1. HERBALS NOS W/VITAMINS NOS [Concomitant]
  2. NAPROXEN (ALEVE) [Concomitant]
     Dosage: UNK
     Dates: end: 20090330
  3. YAZ [Suspect]
     Indication: PREMENSTRUAL SYNDROME
     Dosage: 1 TAB/DAY
     Route: 048
     Dates: start: 20080901, end: 20090415

REACTIONS (4)
  - ABDOMINAL PAIN UPPER [None]
  - CHOLECYSTITIS [None]
  - CHOLECYSTITIS CHRONIC [None]
  - CHOLESTEROSIS [None]
